FAERS Safety Report 26217623 (Version 1)
Quarter: 2025Q4

REPORT INFORMATION
  Report Type: Report from Study
  Country: GB (occurrence: GB)
  Receive Date: 20251231
  Receipt Date: 20251231
  Transmission Date: 20260117
  Serious: Yes (Other)
  Sender: TEVA
  Company Number: GB-TEVA-VS-3406994

PATIENT
  Age: 32 Year
  Sex: Female

DRUGS (1)
  1. OCTREOTIDE [Suspect]
     Active Substance: OCTREOTIDE
     Indication: Product used for unknown indication
     Route: 065

REACTIONS (5)
  - Haematuria [Unknown]
  - Fatigue [Unknown]
  - Dyspnoea [Unknown]
  - Hypotension [Unknown]
  - Product dose omission issue [Unknown]
